FAERS Safety Report 7791340-7 (Version None)
Quarter: 2011Q4

REPORT INFORMATION
  Report Type: 
  Country: None (occurrence: None)
  Receive Date: 20111003
  Receipt Date: 20110922
  Transmission Date: 20120403
  Serious: No
  Sender: FDA-Public Use
  Company Number: US-BIOGENIDEC-2011BI036564

PATIENT
  Age: 30 Year
  Sex: Female

DRUGS (1)
  1. AVONEX [Suspect]
     Indication: MULTIPLE SCLEROSIS
     Route: 030
     Dates: start: 20071203

REACTIONS (4)
  - INJECTION SITE DISCHARGE [None]
  - INJECTION SITE SWELLING [None]
  - DENTAL CARIES [None]
  - INJECTION SITE ERYTHEMA [None]
